FAERS Safety Report 8533938-4 (Version None)
Quarter: 2012Q3

REPORT INFORMATION
  Report Type: 
  Country: None (occurrence: None)
  Receive Date: 20120712
  Receipt Date: 20120627
  Transmission Date: 20120928
  Serious: Yes (Hospitalization)
  Sender: FDA-Public Use
  Company Number: ALK_02700_2012

PATIENT
  Sex: Male

DRUGS (1)
  1. VIVITROL [Suspect]
     Indication: DRUG DEPENDENCE
     Dosage: INTRAMUSCULAR
     Route: 030
     Dates: start: 20120518

REACTIONS (4)
  - GASTROINTESTINAL DISORDER [None]
  - RENAL FAILURE [None]
  - GENERAL SYMPTOM [None]
  - LABORATORY TEST ABNORMAL [None]
